FAERS Safety Report 17888875 (Version 1)
Quarter: 2020Q2

REPORT INFORMATION
  Report Type: Spontaneous
  Country: DE (occurrence: DE)
  Receive Date: 20200612
  Receipt Date: 20200612
  Transmission Date: 20200714
  Serious: Yes (Hospitalization)
  Sender: FDA-Public Use
  Company Number: DE-ASTRAZENECA-2020SE72278

PATIENT
  Age: 82 Year
  Sex: Female

DRUGS (7)
  1. TORASEMID [Concomitant]
     Active Substance: TORSEMIDE
  2. ACETYLSALICYLIC ACID [Suspect]
     Active Substance: ASPIRIN
     Route: 065
  3. EZETIMIB [Concomitant]
     Active Substance: EZETIMIBE
  4. TORASEMID [Concomitant]
     Active Substance: TORSEMIDE
  5. TICAGRELOR. [Suspect]
     Active Substance: TICAGRELOR
     Route: 048
  6. BISOPROLOL [Concomitant]
     Active Substance: BISOPROLOL
  7. LOSARTAN. [Concomitant]
     Active Substance: LOSARTAN

REACTIONS (4)
  - Fatigue [Unknown]
  - Pallor [Unknown]
  - Dyspnoea [Unknown]
  - General physical health deterioration [Unknown]
